FAERS Safety Report 9496199 (Version 1)
Quarter: 2013Q3

REPORT INFORMATION
  Report Type: Spontaneous
  Country: BR (occurrence: BR)
  Receive Date: 20130904
  Receipt Date: 20130904
  Transmission Date: 20140515
  Serious: Yes (Hospitalization)
  Sender: FDA-Public Use
  Company Number: BR-ASTRAZENECA-2013SE66012

PATIENT
  Age: 64 Year
  Sex: Male
  Weight: 96 kg

DRUGS (8)
  1. ATACAND HCT [Suspect]
     Indication: HYPERTENSION
     Dosage: 16/12.5MG, DAILY
     Route: 048
     Dates: start: 2008
  2. SELOZOK [Suspect]
     Indication: HYPERTENSION
     Route: 048
     Dates: start: 2008
  3. CRESTOR [Suspect]
     Indication: BLOOD CHOLESTEROL INCREASED
     Route: 048
     Dates: start: 2008
  4. CRESTOR [Suspect]
     Indication: BLOOD TRIGLYCERIDES INCREASED
     Route: 048
     Dates: start: 2008
  5. BRILINTA [Suspect]
     Indication: CORONARY ARTERY OCCLUSION
     Route: 048
     Dates: start: 201211
  6. ZETIA [Concomitant]
     Indication: BLOOD CHOLESTEROL INCREASED
  7. ZETIA [Concomitant]
     Indication: BLOOD TRIGLYCERIDES INCREASED
  8. ASPIRINA PREVENT [Concomitant]

REACTIONS (2)
  - Coronary artery occlusion [Recovered/Resolved]
  - Off label use [Not Recovered/Not Resolved]
